FAERS Safety Report 9412589 (Version 2)
Quarter: 2013Q3

REPORT INFORMATION
  Report Type: Spontaneous
  Country: IT (occurrence: IT)
  Receive Date: 20130722
  Receipt Date: 20130729
  Transmission Date: 20140515
  Serious: Yes (Hospitalization)
  Sender: FDA-Public Use
  Company Number: IT-TEVA-419043ISR

PATIENT
  Age: 81 Year
  Sex: Male

DRUGS (4)
  1. TAMSULOSIN [Suspect]
     Indication: BENIGN PROSTATIC HYPERPLASIA
     Dosage: .4 MILLIGRAM DAILY;
     Route: 048
     Dates: start: 20130101, end: 20130617
  2. CLOX 250MG [Concomitant]
     Dosage: COMPRESSE 30 TABLETS
  3. MIRAPEXIN 0.18MG [Concomitant]
     Dosage: 30 TABLETS IN BLISTER
  4. ESOMEPRAZOLO SODICO [Concomitant]

REACTIONS (3)
  - Syncope [Unknown]
  - Orthostatic hypotension [Unknown]
  - Multiple fractures [Unknown]
